FAERS Safety Report 8077437-5 (Version None)
Quarter: 2012Q1

REPORT INFORMATION
  Report Type: 
  Country: None (occurrence: None)
  Receive Date: 20120127
  Receipt Date: 20120124
  Transmission Date: 20120608
  Serious: Yes (Death, Life-Threatening, Hospitalization, Other)
  Sender: FDA-Public Use
  Company Number: PHHO2010GB17228

PATIENT
  Sex: Female
  Weight: 51.5 kg

DRUGS (7)
  1. FUROSEMIDE [Concomitant]
     Indication: DIURETIC THERAPY
     Dosage: 80 MG, QD
     Dates: start: 20080101, end: 20101203
  2. GLEEVEC [Suspect]
     Indication: PULMONARY ARTERIAL HYPERTENSION
     Dosage: CODE NOT BROKEN
     Route: 048
     Dates: start: 20101028, end: 20101109
  3. SPIRONOLACTONE [Concomitant]
     Indication: DIURETIC THERAPY
     Dosage: 25 MG, QD
     Dates: start: 20080101, end: 20101203
  4. DIURETICS [Concomitant]
  5. AMBRISENTAN [Concomitant]
     Indication: PULMONARY ARTERIAL HYPERTENSION
     Dosage: 5 MG, QD
     Dates: start: 20090101, end: 20101203
  6. SILDENAFIL [Concomitant]
     Indication: PULMONARY ARTERIAL HYPERTENSION
     Dosage: 50 MG, TDS
     Dates: start: 20080101, end: 20101203
  7. ILOPROST [Concomitant]
     Indication: PULMONARY ARTERIAL HYPERTENSION
     Dosage: 4 UG/HR, UNK
     Route: 042
     Dates: start: 20101119

REACTIONS (7)
  - RENAL IMPAIRMENT [None]
  - HYPONATRAEMIA [None]
  - UNRESPONSIVE TO STIMULI [None]
  - DYSPNOEA [None]
  - ASTHENIA [None]
  - SUBDURAL HAEMATOMA [None]
  - GENERAL PHYSICAL HEALTH DETERIORATION [None]
